FAERS Safety Report 17994016 (Version 1)
Quarter: 2020Q3

REPORT INFORMATION
  Report Type: Spontaneous
  Country: US (occurrence: US)
  Receive Date: 20200707
  Receipt Date: 20200707
  Transmission Date: 20201103
  Serious: Yes (Life-Threatening, Hospitalization)
  Sender: FDA-Public Use
  Company Number: None

PATIENT
  Age: 71 Year
  Sex: Male

DRUGS (4)
  1. SPIRONOLACTONE (SPIRONOLACTONE 100MG TAB) [Suspect]
     Active Substance: SPIRONOLACTONE
     Indication: CARDIAC FAILURE CONGESTIVE
     Route: 048
     Dates: start: 20191108, end: 20191209
  2. SPIRONOLACTONE (SPIRONOLACTONE 100MG TAB) [Suspect]
     Active Substance: SPIRONOLACTONE
     Indication: HYPERTENSION
     Route: 048
     Dates: start: 20191108, end: 20191209
  3. TORSEMIDE (TORSEMIDE 100MG TAB) [Suspect]
     Active Substance: TORSEMIDE
     Indication: CARDIAC FAILURE CONGESTIVE
     Route: 048
     Dates: start: 20190424, end: 20191209
  4. TORSEMIDE (TORSEMIDE 100MG TAB) [Suspect]
     Active Substance: TORSEMIDE
     Indication: HYPERTENSION
     Route: 048
     Dates: start: 20190424, end: 20191209

REACTIONS (6)
  - Blood urea increased [None]
  - Blood creatinine increased [None]
  - Acute kidney injury [None]
  - Hypovolaemia [None]
  - Hyperkalaemia [None]
  - Polyuria [None]

NARRATIVE: CASE EVENT DATE: 20191209
